FAERS Safety Report 7453839-2 (Version None)
Quarter: 2011Q2

REPORT INFORMATION
  Report Type: 
  Country: None (occurrence: None)
  Receive Date: 20110502
  Receipt Date: 20100116
  Transmission Date: 20111010
  Serious: Yes (Death, Hospitalization, Other)
  Sender: FDA-Public Use
  Company Number: US-BAYER-201011373NA

PATIENT
  Age: 61 Year
  Sex: Male
  Weight: 73 kg

DRUGS (20)
  1. AMARYL [Concomitant]
     Indication: DIABETES MELLITUS
     Dosage: 6 MG, QD
     Route: 048
  2. PLAVIX [Concomitant]
  3. PROPOFOL [Concomitant]
     Dosage: 10 MCG/KG/MIN
     Route: 042
     Dates: start: 20011001, end: 20011001
  4. LOPRESSOR [Concomitant]
  5. CLONIDINE [Concomitant]
     Dosage: 0.2 MG, TID
     Route: 048
  6. PANCURONIUM BROMIDE [Concomitant]
     Dosage: 10 MG
     Route: 042
     Dates: start: 20011001, end: 20011001
  7. WHOLE BLOOD [Concomitant]
     Dosage: 4 U, UNK
     Dates: start: 20011001, end: 20011001
  8. CLONIDINE [Concomitant]
     Dosage: ORAL TWICE A DAY
  9. ACETYLSALICYLIC ACID SRT [Concomitant]
     Dosage: 81 MG, QD
     Route: 048
  10. MIDAZOLAM [Concomitant]
     Dosage: 5 MG X 4
     Route: 042
     Dates: start: 20011001, end: 20011001
  11. FENTANYL [Concomitant]
     Dosage: 5MCG X 5
     Route: 042
     Dates: start: 20011001, end: 20011001
  12. TRASYLOL [Suspect]
     Indication: ENDARTERECTOMY
  13. ATACAND HCT [Concomitant]
     Dosage: 32/12.5 MG DAILY
     Route: 048
  14. SODIUM BICARBONATE [Concomitant]
     Dosage: 1 AMPULE
     Route: 042
     Dates: start: 20011001, end: 20011001
  15. TRASYLOL [Suspect]
     Indication: CORONARY ARTERY BYPASS
     Dates: start: 20001001
  16. LISINOPRIL [Concomitant]
  17. ATROVENT BETA [Concomitant]
  18. ZINACEF [Concomitant]
     Dosage: UNK
     Route: 042
     Dates: start: 20011001, end: 20011001
  19. PROCARDIA XL [Concomitant]
     Dosage: 60 MG, QD
     Route: 048
  20. MUCOMYST [Concomitant]
     Dosage: 600 MG, BID PRE CARDIAC CATHETERIZATION
     Dates: start: 20010926, end: 20010927

REACTIONS (14)
  - RENAL FAILURE [None]
  - RENAL INJURY [None]
  - CEREBROVASCULAR ACCIDENT [None]
  - PAIN [None]
  - ANHEDONIA [None]
  - UNEVALUABLE EVENT [None]
  - DEPRESSION [None]
  - INJURY [None]
  - ANXIETY [None]
  - DEATH [None]
  - CARDIAC DISORDER [None]
  - RENAL IMPAIRMENT [None]
  - ORGAN FAILURE [None]
  - FEAR [None]
